FAERS Safety Report 5995884-X (Version None)
Quarter: 2008Q4

REPORT INFORMATION
  Report Type: 
  Country: None (occurrence: None)
  Receive Date: 20081212
  Receipt Date: 20081202
  Transmission Date: 20090506
  Serious: Yes (Other)
  Sender: FDA-Public Use
  Company Number: FR-PFIZER INC-2008151376

PATIENT

DRUGS (4)
  1. SULFASALAZINE [Suspect]
     Indication: SPONDYLITIS
     Dosage: 500 MG, UNK
     Route: 048
     Dates: start: 20010101
  2. ADALIMUMAB [Suspect]
     Dosage: 40 MG, EVERY 15 DAYS
     Route: 058
     Dates: start: 20080701
  3. BI-PROFENID [Concomitant]
     Dosage: 150 MG, 1X/DAY
     Route: 048
     Dates: start: 20050101
  4. NEXIUM [Concomitant]
     Dosage: UNK

REACTIONS (1)
  - COUGH [None]
